FAERS Safety Report 4495252-6 (Version None)
Quarter: 2004Q4

REPORT INFORMATION
  Report Type: 
  Country: None (occurrence: None)
  Receive Date: 20041108
  Receipt Date: 20040802
  Transmission Date: 20050328
  Serious: No
  Sender: FDA-Public Use
  Company Number: US-GLAXOSMITHKLINE-A0520514A

PATIENT
  Age: 48 Year
  Sex: Male

DRUGS (5)
  1. AVANDAMET [Suspect]
     Dosage: 1TAB PER DAY
     Route: 048
  2. MULTIVITAMIN [Concomitant]
  3. CHROMIUM [Concomitant]
  4. DYAZIDE [Concomitant]
  5. LIDOCAINE GEL [Concomitant]

REACTIONS (1)
  - RASH [None]
